FAERS Safety Report 4281878-1 (Version None)
Quarter: 2004Q1

REPORT INFORMATION
  Report Type: 
  Country: None (occurrence: None)
  Receive Date: 20040112
  Receipt Date: 20030102
  Transmission Date: 20041129
  Serious: Yes (Hospitalization, Other)
  Sender: FDA-Public Use
  Company Number: NSADSS2002040711

PATIENT
  Age: 60 Year
  Sex: Male
  Weight: 94.3482 kg

DRUGS (1)
  1. REOPRO [Suspect]
     Dosage: 1 IN 1 AS NECESSARY, INTRAVENOUS BOLUS
     Route: 040

REACTIONS (1)
  - THROMBOCYTOPENIA [None]
